FAERS Safety Report 8476061-X (Version None)
Quarter: 2012Q2

REPORT INFORMATION
  Report Type: 
  Country: None (occurrence: None)
  Receive Date: 20120622
  Receipt Date: 20120612
  Transmission Date: 20120825
  Serious: Yes (Other)
  Sender: FDA-Public Use
  Company Number: 2012000144

PATIENT
  Age: 60 Year
  Sex: Female
  Weight: 86 kg

DRUGS (5)
  1. ACEON [Suspect]
     Indication: HYPERTENSION
     Dosage: 4 MG, QD, ORAL
     Route: 048
     Dates: start: 20120416, end: 20120513
  2. PANTOPRAZOLE SODIUM [Suspect]
     Indication: GASTROOESOPHAGEAL REFLUX DISEASE
     Dosage: 40 MG, QD, ORAL
     Route: 048
     Dates: start: 20120416, end: 20120522
  3. ATENOLAL (ATENOLOL) [Concomitant]
  4. ZOMIG [Concomitant]
  5. AMOXICILLIN [Suspect]
     Indication: PRODUCT USED FOR UNKNOWN INDICATION
     Dosage: 500 MG, TID, ORAL
     Route: 048
     Dates: end: 20120522

REACTIONS (8)
  - DIARRHOEA [None]
  - PANCREATIC MASS [None]
  - JAUNDICE CHOLESTATIC [None]
  - BILE DUCT CANCER [None]
  - PETECHIAE [None]
  - HYPERHIDROSIS [None]
  - HEPATITIS [None]
  - LETHARGY [None]
